FAERS Safety Report 7316885-5 (Version None)
Quarter: 2011Q1

REPORT INFORMATION
  Report Type: 
  Country: None (occurrence: None)
  Receive Date: 20110226
  Receipt Date: 20100831
  Transmission Date: 20110831
  Serious: No
  Sender: FDA-Public Use
  Company Number: US-ALLERGAN-1011233US

PATIENT
  Sex: Female

DRUGS (1)
  1. BOTOXA? [Suspect]
     Indication: TEMPOROMANDIBULAR JOINT SYNDROME
     Dosage: 50 UNITS, SINGLE
     Route: 030
     Dates: start: 20100801, end: 20100801

REACTIONS (4)
  - VIITH NERVE PARALYSIS [None]
  - HYPOAESTHESIA [None]
  - MUSCULOSKELETAL STIFFNESS [None]
  - SKIN TIGHTNESS [None]
